FAERS Safety Report 7795391-8 (Version None)
Quarter: 2011Q3

REPORT INFORMATION
  Report Type: 
  Country: None (occurrence: None)
  Receive Date: 20110930
  Receipt Date: 20110920
  Transmission Date: 20111222
  Serious: Yes (Hospitalization)
  Sender: FDA-Public Use
  Company Number: JP-1185306

PATIENT
  Age: 70 Year
  Sex: Female
  Weight: 60 kg

DRUGS (12)
  1. FLUORESCITE [Suspect]
     Indication: ANGIOGRAM RETINA
     Dosage: (5 ML/15 SEC INTRAVENOUS BOLUS)
     Route: 040
     Dates: start: 20110302, end: 20110302
  2. DIOVAN HCT [Concomitant]
  3. TIMOPTOL [Concomitant]
  4. LANSOPRAZOLE [Concomitant]
  5. TENORMIN [Concomitant]
  6. ACTOS [Concomitant]
  7. BASEN [Concomitant]
  8. BETAMETHASONE [Concomitant]
  9. AMARYL [Concomitant]
  10. XALATAN [Concomitant]
  11. TRUSOPT [Concomitant]
  12. CADUET [Concomitant]

REACTIONS (5)
  - RENAL FAILURE ACUTE [None]
  - DIARRHOEA [None]
  - VOMITING [None]
  - RENAL CYST [None]
  - HEPATIC FUNCTION ABNORMAL [None]
